FAERS Safety Report 5114874-2 (Version None)
Quarter: 2006Q3

REPORT INFORMATION
  Report Type: 
  Country: None (occurrence: None)
  Receive Date: 20060922
  Receipt Date: 20060922
  Transmission Date: 20061208
  Serious: No
  Sender: FDA-Public Use
  Company Number: None

PATIENT
  Age: 6 Week
  Sex: Female

DRUGS (1)
  1. L-THYROXINE [Suspect]

REACTIONS (1)
  - THYROID FUNCTION TEST ABNORMAL [None]
